FAERS Safety Report 8721698 (Version 2)
Quarter: 2012Q4

REPORT INFORMATION
  Report Type: 
  Country: DE (occurrence: DE)
  Receive Date: 20120904
  Receipt Date: 20120914
  Transmission Date: 20130627
  Serious: Yes (Other)
  Sender: FDA-Public Use
  Company Number: DE-RANBAXY-2012RR-58786

PATIENT
  Age: 74 Year
  Sex: Female
  Weight: 43 kg

DRUGS (11)
  1. VENLAFAXINE [Suspect]
     Indication: DEPRESSION
     Dosage: UNK
     Route: 065
  2. CEFUROXIME [Suspect]
     Indication: INFECTION
     Dosage: UNK
     Route: 065
  3. CEFUROXIME [Suspect]
     Indication: CHRONIC OBSTRUCTIVE PULMONARY DISEASE
  4. SALBUTAMOL [Suspect]
     Indication: INFECTION
     Route: 065
  5. SALBUTAMOL [Suspect]
     Indication: CHRONIC OBSTRUCTIVE PULMONARY DISEASE
  6. BISOPROLOL [Suspect]
     Indication: PRODUCT USED FOR UNKNOWN INDICATION
     Dosage: 5 mg, UNK
     Route: 065
  7. FENOTEROL/IPRATROPIUM BROMIDE [Suspect]
     Indication: INFECTION
     Route: 065
  8. FENOTEROL/IPRATROPIUM BROMIDE [Suspect]
     Indication: CHRONIC OBSTRUCTIVE PULMONARY DISEASE
  9. L-THYROXINE [Suspect]
     Indication: HYPOTHYROIDISM
     Dosage: 50 ug
     Route: 065
  10. SALMETEROL [Suspect]
     Indication: PRODUCT USED FOR UNKNOWN INDICATION
     Dosage: UNK
     Route: 065
  11. EDRONAX [Concomitant]
     Indication: DEPRESSION
     Dosage: UNK
     Route: 065

REACTIONS (2)
  - Inappropriate antidiuretic hormone secretion [Recovered/Resolved]
  - Convulsion [Recovered/Resolved]
